FAERS Safety Report 10356314 (Version 1)
Quarter: 2014Q3

REPORT INFORMATION
  Report Type: Spontaneous
  Country: US (occurrence: None)
  Receive Date: 20140730
  Receipt Date: 20140730
  Transmission Date: 20150326
  Serious: Yes (Life-Threatening)
  Sender: FDA-Public Use
  Company Number: None

PATIENT
  Age: 93 Year
  Sex: Female

DRUGS (1)
  1. PRADAXA [Suspect]
     Active Substance: DABIGATRAN ETEXILATE MESYLATE
     Indication: ATRIAL FIBRILLATION
     Dosage: CAME INTO NURSING HOME 6-6-14
     Route: 048
     Dates: start: 20140606

REACTIONS (4)
  - Skin necrosis [None]
  - Haemorrhage [None]
  - Skin discolouration [None]
  - Contusion [None]

NARRATIVE: CASE EVENT DATE: 20140624
